FAERS Safety Report 18051794 (Version 2)
Quarter: 2020Q3

REPORT INFORMATION
  Report Type: Report from Study
  Country: CO (occurrence: CO)
  Receive Date: 20200721
  Receipt Date: 20200728
  Transmission Date: 20201103
  Serious: Yes (Death, Hospitalization)
  Sender: FDA-Public Use
  Company Number: NVSC2020CO204779

PATIENT
  Age: 84 Year
  Sex: Male

DRUGS (1)
  1. REVOLADE [Suspect]
     Active Substance: ELTROMBOPAG
     Indication: IMMUNE THROMBOCYTOPENIA
     Dosage: 75 MG, QD
     Route: 048
     Dates: start: 202004

REACTIONS (10)
  - Pneumonia [Unknown]
  - Dysarthria [Unknown]
  - Death [Fatal]
  - Renal failure [Unknown]
  - Fluid retention [Unknown]
  - Respiratory tract infection [Unknown]
  - Pyrexia [Unknown]
  - Dysuria [Unknown]
  - Platelet count decreased [Not Recovered/Not Resolved]
  - Dyspnoea [Unknown]

NARRATIVE: CASE EVENT DATE: 202006
